FAERS Safety Report 7939498-0 (Version None)
Quarter: 2011Q4

REPORT INFORMATION
  Report Type: 
  Country: None (occurrence: None)
  Receive Date: 20111125
  Receipt Date: 20111124
  Transmission Date: 20120403
  Serious: Yes (Death, Life-Threatening, Hospitalization)
  Sender: FDA-Public Use
  Company Number: JP-BAYER-2011-113363

PATIENT
  Age: 56 Year
  Sex: Female
  Weight: 35 kg

DRUGS (15)
  1. EPOPROSTENOL SODIUM [Suspect]
     Indication: PULMONARY HYPERTENSION
     Dosage: UNK
     Route: 042
     Dates: start: 20080101
  2. DENOPAMINE [Concomitant]
     Dosage: DAILY DOSE 40 MG
     Route: 048
     Dates: start: 20110101
  3. FUROSEMIDE [Concomitant]
     Dosage: DAILY DOSE 40 MG
     Route: 048
     Dates: start: 20110101
  4. PIMOBENDAN [Concomitant]
     Dosage: DAILY DOSE 5 MG
     Route: 048
     Dates: start: 20110101
  5. EPOPROSTENOL SODIUM [Suspect]
     Dosage: UNK
     Route: 042
     Dates: start: 20081201
  6. TRICHLORMETHIAZIDE [Concomitant]
     Dosage: DAILY DOSE 1 MG
     Route: 048
     Dates: start: 20110101
  7. TADALAFIL [Suspect]
     Indication: PULMONARY HYPERTENSION
     Dosage: UNK
     Route: 048
     Dates: start: 20110101
  8. ASPIRIN [Suspect]
     Indication: PULMONARY HYPERTENSION
     Dosage: DAILY DOSE 1 DF
     Route: 048
     Dates: start: 20110101
  9. EPOPROSTENOL SODIUM [Suspect]
     Dosage: UNK
     Route: 042
     Dates: start: 20110101
  10. AMBRISENTAN [Suspect]
     Indication: PULMONARY HYPERTENSION
     Dosage: UNK
     Route: 048
     Dates: start: 20110101
  11. CATECHOLAMINE [Concomitant]
     Dosage: UNK
     Route: 065
     Dates: start: 20080101
  12. EPOPROSTENOL SODIUM [Suspect]
     Route: 042
  13. EPOPROSTENOL SODIUM [Suspect]
     Dosage: UNK
     Route: 042
     Dates: start: 20110101
  14. METILDIGOXIN [Concomitant]
     Dosage: DAILY DOSE 1 DF
     Route: 048
     Dates: start: 20110101
  15. SPIRONOLACTONE [Concomitant]
     Dosage: DAILY DOSE 25 MG
     Route: 048
     Dates: start: 20110101

REACTIONS (1)
  - PULMONARY ALVEOLAR HAEMORRHAGE [None]
